FAERS Safety Report 8989048 (Version 1)
Quarter: 2012Q4

REPORT INFORMATION
  Report Type: 
  Country: US (occurrence: US)
  Receive Date: 20121228
  Receipt Date: 20121228
  Transmission Date: 20130627
  Serious: Yes (Hospitalization, Other)
  Sender: FDA-Public Use
  Company Number: US-ELI_LILLY_AND_COMPANY-US201212007865

PATIENT
  Sex: Female

DRUGS (2)
  1. HUMALOG LISPRO [Suspect]
     Indication: TYPE 2 DIABETES MELLITUS
     Dosage: UNK UNK, prn
     Dates: start: 2000
  2. HUMALOG LISPRO [Suspect]
     Dosage: UNK, prn

REACTIONS (6)
  - Cardiac failure congestive [Unknown]
  - Sinusitis [Unknown]
  - Cataract [Unknown]
  - Blood glucose increased [Unknown]
  - Confusional state [Not Recovered/Not Resolved]
  - Disturbance in attention [Not Recovered/Not Resolved]
